FAERS Safety Report 7291638-5 (Version None)
Quarter: 2011Q1

REPORT INFORMATION
  Report Type: 
  Country: None (occurrence: None)
  Receive Date: 20110214
  Receipt Date: 20110204
  Transmission Date: 20110831
  Serious: Yes (Other)
  Sender: FDA-Public Use
  Company Number: DE-CEPHALON-2011000491

PATIENT
  Sex: Male
  Weight: 51 kg

DRUGS (12)
  1. TANTUM VERDE [Concomitant]
  2. FLUNITRAZEPAM [Concomitant]
  3. ZOPICLONE [Concomitant]
  4. TEMAZEPAM [Concomitant]
  5. MACROGOL [Concomitant]
  6. METHYLPREDNISOLONE [Suspect]
     Indication: MULTIPLE SCLEROSIS RELAPSE
  7. FRISIUM [Concomitant]
  8. DIVERSE HEMEOPATHICS [Concomitant]
  9. ALFUZOSIN [Concomitant]
  10. LAXANS RATIOPHARM [Concomitant]
  11. VALDOXAN [Concomitant]
  12. MODAFINIL [Suspect]
     Indication: FATIGUE
     Route: 048
     Dates: start: 20080101, end: 20101201

REACTIONS (2)
  - SKIN NECROSIS [None]
  - DECUBITUS ULCER [None]
